FAERS Safety Report 7048543-9 (Version None)
Quarter: 2010Q4

REPORT INFORMATION
  Report Type: 
  Country: None (occurrence: None)
  Receive Date: 20101008
  Receipt Date: 20100929
  Transmission Date: 20110411
  Serious: Yes (Disabling)
  Sender: FDA-Public Use
  Company Number: 714710

PATIENT
  Age: 29 Year
  Sex: Male

DRUGS (1)
  1. BUPIVACAINE HCL [Suspect]
     Indication: PAIN
     Dosage: INTRA-ARTICULAR
     Route: 014

REACTIONS (1)
  - JOINT INJURY [None]
